FAERS Safety Report 24126278 (Version 1)
Quarter: 2024Q3

REPORT INFORMATION
  Report Type: Spontaneous
  Country: US (occurrence: US)
  Receive Date: 20240723
  Receipt Date: 20240723
  Transmission Date: 20241016
  Serious: Yes (Other)
  Sender: BIOLOGICAL E.
  Company Number: US-BELUSA-2024BELLIT0086

PATIENT

DRUGS (1)
  1. HEPARIN SODIUM [Suspect]
     Active Substance: HEPARIN SODIUM
     Indication: Anticoagulant therapy
     Route: 065

REACTIONS (3)
  - Haemolytic anaemia [Unknown]
  - Heparin-induced thrombocytopenia [Unknown]
  - Exposure during pregnancy [Unknown]
